FAERS Safety Report 9662424 (Version 2)
Quarter: 2013Q4

REPORT INFORMATION
  Report Type: Spontaneous
  Country: US (occurrence: US)
  Receive Date: 20131031
  Receipt Date: 20131031
  Transmission Date: 20140711
  Serious: No
  Sender: FDA-Public Use
  Company Number: US-PURDUE-USA-2011-0064003

PATIENT
  Age: 40 Year
  Sex: Male

DRUGS (2)
  1. OXYCONTIN (NDA 22-272) [Suspect]
     Indication: RADICULOPATHY
     Dosage: 10 MG, BID
     Route: 048
     Dates: start: 20110126, end: 20110204
  2. OXYCODONE HCL IMMEDIATE RELEASE (91-490) [Suspect]
     Indication: RADICULOPATHY
     Dosage: 5 MG, SEE TEXT
     Dates: start: 20110126, end: 20110214

REACTIONS (4)
  - Musculoskeletal stiffness [Recovered/Resolved]
  - Agitation [Recovered/Resolved]
  - Irritability [Recovered/Resolved]
  - Euphoric mood [Recovered/Resolved]
